FAERS Safety Report 8001624-5 (Version None)
Quarter: 2011Q4

REPORT INFORMATION
  Report Type: 
  Country: None (occurrence: None)
  Receive Date: 20111222
  Receipt Date: 20070608
  Transmission Date: 20120403
  Serious: No
  Sender: FDA-Public Use
  Company Number: US-GLAXOSMITHKLINE-A0644963A

PATIENT
  Age: 30 Year
  Sex: Male

DRUGS (1)
  1. NICOTINE POLACRILEX [Suspect]
     Indication: EX-TOBACCO USER

REACTIONS (4)
  - FOREIGN BODY [None]
  - GINGIVAL INJURY [None]
  - PRODUCT QUALITY ISSUE [None]
  - GINGIVAL BLEEDING [None]
